FAERS Safety Report 9424401 (Version 1)
Quarter: 2013Q3

REPORT INFORMATION
  Report Type: Spontaneous
  Country: DE (occurrence: DE)
  Receive Date: 20130729
  Receipt Date: 20130729
  Transmission Date: 20140515
  Serious: Yes (Other)
  Sender: FDA-Public Use
  Company Number: DE-JNJFOC-20130713682

PATIENT
  Age: 63 Year
  Sex: Female
  Weight: 73 kg

DRUGS (9)
  1. XARELTO [Suspect]
     Indication: CEREBROVASCULAR ACCIDENT PROPHYLAXIS
     Route: 048
     Dates: start: 201304, end: 20130703
  2. XARELTO [Suspect]
     Indication: ATRIAL FIBRILLATION
     Route: 048
     Dates: start: 201304, end: 20130703
  3. IRBESARTAN [Concomitant]
     Route: 065
  4. BELOC ZOK [Concomitant]
     Route: 065
  5. PANTOPRAZOLE [Concomitant]
     Route: 065
  6. SELEN [Concomitant]
     Route: 065
  7. SPIRIVA [Concomitant]
     Route: 065
  8. L-THYROXIN [Concomitant]
     Route: 065
  9. HCT [Concomitant]
     Route: 065

REACTIONS (3)
  - Cardiac failure [Recovered/Resolved]
  - General physical health deterioration [Recovered/Resolved]
  - Myalgia [Recovered/Resolved]
